FAERS Safety Report 22598800 (Version 1)
Quarter: 2023Q2

REPORT INFORMATION
  Report Type: Report from Study
  Country: US (occurrence: None)
  Receive Date: 20230614
  Receipt Date: 20230614
  Transmission Date: 20230721
  Serious: Yes (Hospitalization)
  Sender: FDA-Public Use
  Company Number: US-ROCHE-3366324

PATIENT
  Age: 49 Year
  Sex: Female
  Weight: 166.7 kg

DRUGS (4)
  1. ATEZOLIZUMAB [Suspect]
     Active Substance: ATEZOLIZUMAB
     Indication: Colon cancer stage III
     Dosage: ON DAY 1?CYCLES 1-12, CYCLE = 14 DAYS?CYCLES 13-25, CYCLE = 14 DAYS?ATEZOLIZUMAB (MPDL3280A): 840 M
     Route: 041
     Dates: start: 20220414
  2. OXALIPLATIN [Suspect]
     Active Substance: OXALIPLATIN
     Indication: Colon cancer stage III
     Dosage: OVER 2 HOURS ON DAY 1?CYCLES 1-12, CYCLE = 14 DAYS?LAST ADMINISTERED DATE 21-JUL-2022
     Route: 042
     Dates: start: 20220414
  3. LEUCOVORIN CALCIUM [Suspect]
     Active Substance: LEUCOVORIN CALCIUM
     Indication: Colon cancer stage III
     Dosage: OVER 2 HOURS ON DAY 1?CYCLES 1-12, CYCLE = 14 DAYS?LAST ADMINISTERED DATE 21-JUL-2022
     Route: 042
     Dates: start: 20220414
  4. FLUOROURACIL [Suspect]
     Active Substance: FLUOROURACIL
     Indication: Colon cancer stage III
     Dosage: 400MG/M2 IV (BOLUS) ON DAY 1 FOLLOWED BY 2400MG/M2 IV OVER 46 HOURS DAYS 1-3?CYCLES 1-12, CYCLE = 14
     Route: 040
     Dates: start: 20220414

REACTIONS (3)
  - Pleuritic pain [Recovered/Resolved with Sequelae]
  - Hypoxia [Recovered/Resolved with Sequelae]
  - Pyrexia [Recovered/Resolved with Sequelae]

NARRATIVE: CASE EVENT DATE: 20220721
